FAERS Safety Report 4694913-3 (Version None)
Quarter: 2005Q2

REPORT INFORMATION
  Report Type: 
  Country: None (occurrence: None)
  Receive Date: 20050617
  Receipt Date: 20050610
  Transmission Date: 20051028
  Serious: Yes (Other)
  Sender: FDA-Public Use
  Company Number: S05-USA-02665-01

PATIENT
  Age: 83 Year
  Sex: Female

DRUGS (7)
  1. NAMENDA [Suspect]
     Indication: DEMENTIA
     Dosage: 5 MG QD PO
     Route: 048
     Dates: start: 20050511, end: 20050501
  2. NAMENDA [Suspect]
     Indication: DEMENTIA
     Dosage: 5 MG QD PO
     Route: 048
     Dates: start: 20050603, end: 20050605
  3. ARICEPT [Concomitant]
  4. AMBIEN [Concomitant]
  5. TRAZODONE [Concomitant]
  6. FOSAMAX [Concomitant]
  7. MORPHINE PATCH (MORPHINE) [Concomitant]

REACTIONS (4)
  - AGITATION [None]
  - COLON CANCER [None]
  - CONFUSIONAL STATE [None]
  - FALL [None]
